FAERS Safety Report 21608132 (Version 5)
Quarter: 2023Q2

REPORT INFORMATION
  Report Type: Spontaneous
  Country: US (occurrence: US)
  Receive Date: 20221117
  Receipt Date: 20230515
  Transmission Date: 20230722
  Serious: Yes (Other)
  Sender: FDA-Public Use
  Company Number: US-GSK-US2022AMR167092

PATIENT

DRUGS (3)
  1. DOVATO [Suspect]
     Active Substance: DOLUTEGRAVIR SODIUM\LAMIVUDINE
     Indication: HIV infection
     Dosage: 1 DF, QD(  50 MG/300 MG)
     Route: 048
     Dates: start: 20221025
  2. AZT [Suspect]
     Active Substance: ZIDOVUDINE
     Indication: HIV infection
     Dosage: UNK
  3. TRIZIVIR [Suspect]
     Active Substance: ABACAVIR SULFATE\LAMIVUDINE\ZIDOVUDINE
     Indication: HIV infection
     Dosage: UNK
     Route: 048

REACTIONS (11)
  - Diverticulitis [Not Recovered/Not Resolved]
  - Skin cancer [Unknown]
  - Opportunistic infection [Unknown]
  - Lipoatrophy [Not Recovered/Not Resolved]
  - Blood cholesterol increased [Unknown]
  - Depression [Unknown]
  - Influenza [Recovering/Resolving]
  - Coronavirus infection [Unknown]
  - General physical health deterioration [Not Recovered/Not Resolved]
  - Sinusitis [Not Recovered/Not Resolved]
  - Nasopharyngitis [Unknown]
